FAERS Safety Report 6108186-8 (Version None)
Quarter: 2009Q1

REPORT INFORMATION
  Report Type: 
  Country: None (occurrence: None)
  Receive Date: 20090305
  Receipt Date: 20090305
  Transmission Date: 20090719
  Serious: Yes (Hospitalization)
  Sender: FDA-Public Use
  Company Number: None

PATIENT
  Sex: Female
  Weight: 96 kg

DRUGS (10)
  1. NOLVADEX [Suspect]
     Dosage: 20 MG
  2. DIAZIDE [Concomitant]
  3. LOPID [Concomitant]
  4. OXYCONTIN [Concomitant]
  5. PROZAC [Concomitant]
  6. XANAX [Concomitant]
  7. AMITRIPTYLINE [Concomitant]
  8. LEVOTHYROXINE SODIUM [Concomitant]
  9. METOPROLOL TARTRATE [Concomitant]
  10. OXYCODONE HCL [Concomitant]

REACTIONS (8)
  - ATRIAL FIBRILLATION [None]
  - ESCHERICHIA SEPSIS [None]
  - HYPOTHYROIDISM [None]
  - PNEUMONIA [None]
  - RENAL FAILURE ACUTE [None]
  - RESPIRATORY FAILURE [None]
  - RHABDOMYOLYSIS [None]
  - URINARY TRACT INFECTION [None]
